FAERS Safety Report 5317218-6 (Version None)
Quarter: 2007Q2

REPORT INFORMATION
  Report Type: 
  Country: None (occurrence: None)
  Receive Date: 20070504
  Receipt Date: 20070425
  Transmission Date: 20071010
  Serious: Yes (Other)
  Sender: FDA-Public Use
  Company Number: FR-PFIZER INC-2007030583

PATIENT
  Age: 87 Year
  Sex: Female

DRUGS (1)
  1. AMLOR [Suspect]
     Indication: HYPERTENSION

REACTIONS (6)
  - CHEST X-RAY ABNORMAL [None]
  - DRUG INEFFECTIVE [None]
  - DYSPNOEA [None]
  - PRODUCTIVE COUGH [None]
  - PULMONARY CONGESTION [None]
  - WHEEZING [None]
